FAERS Safety Report 25730680 (Version 1)
Quarter: 2025Q3

REPORT INFORMATION
  Report Type: Spontaneous
  Country: US (occurrence: None)
  Receive Date: 20250825
  Receipt Date: 20250825
  Transmission Date: 20251021
  Serious: Yes (Hospitalization)
  Sender: FDA-CTU
  Company Number: None

PATIENT
  Age: 56 Year
  Sex: Female
  Weight: 81.65 kg

DRUGS (1)
  1. XELJANZ [Suspect]
     Active Substance: TOFACITINIB CITRATE
     Indication: Psoriasis
     Dosage: 11 MG DAILY ORAL ?
     Route: 048
     Dates: start: 20250304, end: 20250825

REACTIONS (2)
  - Herpes zoster [None]
  - Therapy interrupted [None]

NARRATIVE: CASE EVENT DATE: 20250824
